FAERS Safety Report 25732295 (Version 2)
Quarter: 2025Q3

REPORT INFORMATION
  Report Type: Spontaneous
  Country: US (occurrence: US)
  Receive Date: 20250827
  Receipt Date: 20250922
  Transmission Date: 20251021
  Serious: No
  Sender: PFIZER
  Company Number: US-PFIZER INC-202500167061

PATIENT

DRUGS (1)
  1. THROMBIN [Suspect]
     Active Substance: THROMBIN

REACTIONS (1)
  - Product contamination physical [Unknown]
